FAERS Safety Report 7716002-3 (Version None)
Quarter: 2011Q3

REPORT INFORMATION
  Report Type: 
  Country: None (occurrence: None)
  Receive Date: 20110812
  Receipt Date: 20110105
  Transmission Date: 20111222
  Serious: Yes (Hospitalization)
  Sender: FDA-Public Use
  Company Number: MEDI-0011888

PATIENT
  Age: 6 Month
  Sex: Female

DRUGS (8)
  1. METHADONE HCL [Concomitant]
  2. ALDACTONE [Concomitant]
  3. OMERPERZOLE (OMEPRAZOLE) [Concomitant]
  4. FER-IN-SOL (FERROUS SULFATE) [Concomitant]
  5. SYNAGIS [Suspect]
     Dates: start: 20101105, end: 20101203
  6. ALBUTEROL [Concomitant]
  7. PULMICORT [Concomitant]
  8. MULTIVITAMIN [Concomitant]

REACTIONS (1)
  - PYREXIA [None]
